FAERS Safety Report 5312620-0 (Version None)
Quarter: 2007Q2

REPORT INFORMATION
  Report Type: 
  Country: None (occurrence: None)
  Receive Date: 20070430
  Receipt Date: 20070419
  Transmission Date: 20071010
  Serious: Yes (Death, Hospitalization)
  Sender: FDA-Public Use
  Company Number: US-BRISTOL-MYERS SQUIBB COMPANY-13744198

PATIENT
  Age: 56 Year
  Sex: Female

DRUGS (15)
  1. DASATINIB [Suspect]
     Dosage: 21APR05 70MGTWICEDAILY;18JUL06TO26MAR07 60MGDAILY;27MAR07 80MGDAILY;09APR07 60MG DAILY;10APR07 DISC.
     Route: 048
     Dates: start: 20050421, end: 20070410
  2. SPIRONOLACTONE [Concomitant]
     Dates: start: 20070405
  3. LISINOPRIL [Concomitant]
  4. FELODIPINE [Concomitant]
  5. CATAPRES-TTS-1 [Concomitant]
  6. FUROSEMIDE [Concomitant]
     Dosage: INCREASED TO 80 MG TWICE DAILY ON 20-MAR-2007
  7. ACYCLOVIR [Concomitant]
     Dates: start: 20070320
  8. ALLOPURINOL [Concomitant]
  9. CHLORHEXIDINE GLUCONATE [Concomitant]
     Route: 048
  10. NASAREL [Concomitant]
     Route: 055
  11. PROCRIT [Concomitant]
  12. LISINOPRIL AND HYDROCHLOROTHIAZIDE [Concomitant]
     Dates: start: 20070327
  13. ATENOLOL [Concomitant]
  14. PREVIDENT [Concomitant]
  15. ACETAMINOPHEN W/ PROPOXYPHENE HCL [Concomitant]

REACTIONS (6)
  - ACUTE CORONARY SYNDROME [None]
  - CARDIOGENIC SHOCK [None]
  - CARDIOMYOPATHY [None]
  - DYSPNOEA [None]
  - PULMONARY HYPERTENSION [None]
  - RESPIRATORY FAILURE [None]
